FAERS Safety Report 8168139-5 (Version None)
Quarter: 2012Q1

REPORT INFORMATION
  Report Type: 
  Country: None (occurrence: None)
  Receive Date: 20120227
  Receipt Date: 20120214
  Transmission Date: 20120608
  Serious: Yes (Disabling)
  Sender: FDA-Public Use
  Company Number: PHHY2012FR013342

PATIENT
  Sex: Male

DRUGS (1)
  1. GLEEVEC [Suspect]
     Indication: CHRONIC MYELOID LEUKAEMIA
     Dosage: 400 MG, UNK
     Route: 048
     Dates: start: 20031001

REACTIONS (4)
  - PROSTATE CANCER STAGE II [None]
  - NEOPLASM MALIGNANT [None]
  - MUSCLE SPASMS [None]
  - HYPOKALAEMIA [None]
